FAERS Safety Report 8238704-5 (Version None)
Quarter: 2012Q1

REPORT INFORMATION
  Report Type: 
  Country: None (occurrence: None)
  Receive Date: 20120327
  Receipt Date: 20120320
  Transmission Date: 20120608
  Serious: Yes (Other)
  Sender: FDA-Public Use
  Company Number: NL-PFIZER INC-2012019091

PATIENT
  Sex: Female
  Weight: 63 kg

DRUGS (2)
  1. LYRICA [Suspect]
     Indication: EPILEPSY
     Dosage: 150 MG
     Route: 048
     Dates: start: 20070101, end: 20120116
  2. LYRICA [Suspect]
     Indication: FIBROMYALGIA
     Dosage: 75 MG
     Route: 048

REACTIONS (1)
  - ABORTION SPONTANEOUS [None]
